FAERS Safety Report 20148063 (Version 10)
Quarter: 2022Q1

REPORT INFORMATION
  Report Type: Report from Study
  Country: CN (occurrence: CN)
  Receive Date: 20211204
  Receipt Date: 20220329
  Transmission Date: 20220423
  Serious: Yes (Hospitalization)
  Sender: FDA-Public Use
  Company Number: CN-NOVARTISPH-NVSC2021CN275534

PATIENT
  Age: 74 Year
  Sex: Female
  Weight: 55 kg

DRUGS (11)
  1. CAPMATINIB [Suspect]
     Active Substance: CAPMATINIB
     Indication: Non-small cell lung cancer
     Dosage: 400 MG, BID
     Route: 048
     Dates: start: 20210927
  2. CAPMATINIB [Suspect]
     Active Substance: CAPMATINIB
     Dosage: 300 MG, BID
     Route: 048
     Dates: start: 20211207
  3. RECOMBINANT HUMAN GRANULOCYTE COLONY STIMULAT [Concomitant]
     Indication: Leukopenia
     Dosage: UNK
     Route: 065
     Dates: start: 20211204, end: 20211204
  4. ALBUMIN HUMAN [Concomitant]
     Active Substance: ALBUMIN HUMAN
     Indication: Hypoalbuminaemia
     Dosage: UNK
     Route: 065
     Dates: start: 20211207, end: 20211207
  5. DEXAMETHASONE [Concomitant]
     Active Substance: DEXAMETHASONE
     Indication: Endoscopy
     Dosage: UNK
     Route: 065
     Dates: start: 20211205, end: 20211205
  6. SODIUM HYALURONATE [Concomitant]
     Active Substance: HYALURONATE SODIUM
     Indication: Cataract
     Dosage: UNK
     Route: 065
     Dates: start: 202106
  7. OPRELVEKIN [Concomitant]
     Active Substance: OPRELVEKIN
     Indication: Thrombocytopenia
     Dosage: UNK
     Route: 065
     Dates: start: 20211204, end: 20211204
  8. ETOMIDATE [Concomitant]
     Active Substance: ETOMIDATE
     Indication: Endoscopy
     Dosage: UNK
     Route: 065
     Dates: start: 20211205, end: 20211205
  9. ATROPINE [Concomitant]
     Active Substance: ATROPINE
     Indication: Endoscopy
     Dosage: UNK
     Route: 065
     Dates: start: 20211205, end: 20211205
  10. ZOPICLONE [Concomitant]
     Active Substance: ZOPICLONE
     Indication: Sleep disorder
     Dosage: UNK
     Route: 065
     Dates: start: 202108
  11. BUTORPHANOL TARTRATE [Concomitant]
     Active Substance: BUTORPHANOL TARTRATE
     Indication: Endoscopy
     Dosage: UNK
     Route: 065
     Dates: start: 20211205, end: 20211205

REACTIONS (1)
  - Hepatic function abnormal [Recovered/Resolved]

NARRATIVE: CASE EVENT DATE: 20211201
